FAERS Safety Report 15342994 (Version 1)
Quarter: 2018Q3

REPORT INFORMATION
  Report Type: Report from Study
  Country: US (occurrence: US)
  Receive Date: 20180903
  Receipt Date: 20180903
  Transmission Date: 20181010
  Serious: Yes (Hospitalization)
  Sender: FDA-Public Use
  Company Number: US-ROCHE-2175829

PATIENT
  Age: 66 Year
  Sex: Male
  Weight: 95.34 kg

DRUGS (30)
  1. VENETOCLAX. [Suspect]
     Active Substance: VENETOCLAX
     Route: 048
     Dates: start: 201805, end: 2018
  2. TOCOPHEROL [Concomitant]
     Active Substance: TOCOPHEROL
     Route: 048
  3. RETINOL [Concomitant]
     Active Substance: RETINOL
     Route: 048
  4. MANGANESE [Concomitant]
     Active Substance: MANGANESE\MANGANESE CHLORIDE
     Route: 048
  5. VYTORIN [Concomitant]
     Active Substance: EZETIMIBE\SIMVASTATIN
     Indication: BLOOD CHOLESTEROL
     Dosage: FOR YEARS
     Route: 048
  6. THIAMINE HYDROCHLORIDE. [Concomitant]
     Active Substance: THIAMINE HYDROCHLORIDE
     Route: 048
  7. RIBOFLAVIN [Concomitant]
     Active Substance: RIBOFLAVIN
     Route: 048
  8. SELENIUM [Concomitant]
     Active Substance: SELENIUM
     Route: 048
  9. VENETOCLAX. [Suspect]
     Active Substance: VENETOCLAX
     Indication: CHRONIC LYMPHOCYTIC LEUKAEMIA
     Route: 048
     Dates: start: 20160712, end: 20160718
  10. VENETOCLAX. [Suspect]
     Active Substance: VENETOCLAX
     Route: 048
     Dates: start: 20180814, end: 201808
  11. OBINUTUZUMAB. [Suspect]
     Active Substance: OBINUTUZUMAB
     Indication: LYMPHADENOPATHY
     Dosage: 7 DAYS
     Route: 065
     Dates: start: 20180427
  12. VALSARTAN. [Concomitant]
     Active Substance: VALSARTAN
     Indication: BLOOD PRESSURE MEASUREMENT
     Dosage: 6?7 YEARS; 160/12.5 MG
     Route: 065
  13. NICOTINAMIDE [Concomitant]
     Active Substance: NIACINAMIDE
     Route: 048
  14. CALCIUM PANTOTHENATE [Concomitant]
     Active Substance: CALCIUM PANTOTHENATE
     Route: 048
  15. SILICON DIOXIDE [Concomitant]
     Active Substance: SILICON DIOXIDE
  16. VENETOCLAX. [Suspect]
     Active Substance: VENETOCLAX
     Route: 048
     Dates: start: 20160721, end: 20160725
  17. CHLORINE [Concomitant]
     Active Substance: CHLORINE
     Route: 048
  18. VENETOCLAX. [Suspect]
     Active Substance: VENETOCLAX
     Route: 048
     Dates: start: 20160719, end: 20160719
  19. VENETOCLAX. [Suspect]
     Active Substance: VENETOCLAX
     Route: 048
     Dates: start: 20160809, end: 201804
  20. COPPER [Concomitant]
     Active Substance: COPPER
     Route: 048
  21. VENETOCLAX. [Suspect]
     Active Substance: VENETOCLAX
     Route: 048
     Dates: start: 20160802, end: 20160808
  22. LEVOTHYROXINE. [Concomitant]
     Active Substance: LEVOTHYROXINE
     Indication: THYROID HORMONE REPLACEMENT THERAPY
     Route: 048
     Dates: start: 1997
  23. ASCORBIC ACID. [Concomitant]
     Active Substance: ASCORBIC ACID
     Route: 048
  24. PYRIDOXINE HYDROCHLORIDE. [Concomitant]
     Active Substance: PYRIDOXINE HYDROCHLORIDE
     Route: 048
  25. VENETOCLAX. [Suspect]
     Active Substance: VENETOCLAX
     Route: 048
     Dates: start: 20160726, end: 20160801
  26. COLECALCIFEROL [Concomitant]
     Active Substance: CHOLECALCIFEROL
     Route: 048
  27. FOLIC ACID. [Concomitant]
     Active Substance: FOLIC ACID
     Route: 048
  28. BIOTIN [Concomitant]
     Active Substance: BIOTIN
     Route: 048
  29. CYANOCOBALAMIN. [Concomitant]
     Active Substance: CYANOCOBALAMIN
     Route: 048
  30. PHYTOMENADIONE [Concomitant]
     Active Substance: PHYTONADIONE
     Route: 048

REACTIONS (12)
  - Liver disorder [Recovering/Resolving]
  - Blood potassium abnormal [Recovered/Resolved]
  - Hyperacusis [Recovered/Resolved]
  - Lymphadenopathy [Not Recovered/Not Resolved]
  - Drug effect decreased [Not Recovered/Not Resolved]
  - Tumour lysis syndrome [Recovered/Resolved]
  - Blood magnesium abnormal [Recovered/Resolved]
  - Lymphadenopathy [Recovered/Resolved]
  - Blood phosphorus abnormal [Recovered/Resolved]
  - Chills [Recovered/Resolved]
  - Renal disorder [Recovering/Resolving]
  - Head discomfort [Recovered/Resolved]

NARRATIVE: CASE EVENT DATE: 2018
